FAERS Safety Report 8245085-X (Version None)
Quarter: 2012Q1

REPORT INFORMATION
  Report Type: 
  Country: None (occurrence: None)
  Receive Date: 20120329
  Receipt Date: 20120321
  Transmission Date: 20120608
  Serious: Yes (Life-Threatening)
  Sender: FDA-Public Use
  Company Number: US-GLAXOSMITHKLINE-A0970602A

PATIENT
  Age: 54 Year
  Sex: Male

DRUGS (6)
  1. FLOMAX [Concomitant]
  2. TRAMADOL HCL [Suspect]
     Indication: HEADACHE
     Dosage: 50MG AS REQUIRED
     Route: 048
     Dates: start: 20120221, end: 20120320
  3. LOVENOX [Concomitant]
  4. VOTRIENT [Suspect]
     Indication: METASTATIC RENAL CELL CARCINOMA
     Dosage: 800MG PER DAY
     Route: 048
     Dates: start: 20120125, end: 20120320
  5. LEXAPRO [Concomitant]
  6. SIMVASTATIN [Concomitant]

REACTIONS (4)
  - BLOOD BILIRUBIN INCREASED [None]
  - HEPATOTOXICITY [None]
  - ALANINE AMINOTRANSFERASE ABNORMAL [None]
  - LIVER FUNCTION TEST ABNORMAL [None]
